FAERS Safety Report 6674937-7 (Version None)
Quarter: 2010Q2

REPORT INFORMATION
  Report Type: 
  Country: None (occurrence: None)
  Receive Date: 20100409
  Receipt Date: 20100405
  Transmission Date: 20101027
  Serious: Yes (Other)
  Sender: FDA-Public Use
  Company Number: JP-EISAI INC.-E2090-01134-SPO-JP

PATIENT
  Age: 29 Year
  Sex: Male

DRUGS (1)
  1. ZONISAMIDE [Suspect]
     Indication: DRUG USE FOR UNKNOWN INDICATION
     Dosage: 100 MG
     Route: 048
     Dates: start: 20090301, end: 20090401

REACTIONS (1)
  - DRUG RASH WITH EOSINOPHILIA AND SYSTEMIC SYMPTOMS [None]
